FAERS Safety Report 15644833 (Version 1)
Quarter: 2018Q4

REPORT INFORMATION
  Report Type: Spontaneous
  Country: JP (occurrence: JP)
  Receive Date: 20181121
  Receipt Date: 20181121
  Transmission Date: 20190205
  Serious: Yes (Hospitalization, Other)
  Sender: FDA-Public Use
  Company Number: JP-UCBSA-2018050445

PATIENT
  Age: 46 Year
  Sex: Male
  Weight: 56 kg

DRUGS (13)
  1. CONTOMIN [Suspect]
     Active Substance: CHLORPROMAZINE
     Indication: SEDATIVE THERAPY
     Dosage: 10 MG, ONCE DAILY (QD)
     Route: 030
     Dates: start: 20181025, end: 20181025
  2. PLEVITA S [Concomitant]
     Indication: PRODUCT USED FOR UNKNOWN INDICATION
     Dosage: 5 ML PER DAY
     Route: 042
     Dates: start: 20181024, end: 20181026
  3. KCL CORRECTIVE [Concomitant]
     Indication: PRODUCT USED FOR UNKNOWN INDICATION
     Dosage: 10 MEQ, ONCE DAILY (QD)
     Route: 042
     Dates: start: 20181024, end: 20181024
  4. SOLACET F [Concomitant]
     Indication: PRODUCT USED FOR UNKNOWN INDICATION
     Dosage: 500 ML PER DAY
     Route: 042
     Dates: start: 20181024, end: 20181026
  5. SERENACE [Suspect]
     Active Substance: HALOPERIDOL
     Indication: SEDATIVE THERAPY
     Dosage: 10 MG PER DAY
     Route: 042
     Dates: start: 20181025, end: 20181025
  6. CEFTRIAXONE SODIUM. [Suspect]
     Active Substance: CEFTRIAXONE SODIUM
     Indication: PYREXIA
     Dosage: 1 G, 2X/DAY (BID)
     Route: 042
     Dates: start: 20181024, end: 20181026
  7. OMEPRAZOLE SODIUM [Concomitant]
     Active Substance: OMEPRAZOLE SODIUM
     Indication: PRODUCT USED FOR UNKNOWN INDICATION
     Dosage: 20 MG, 2X/DAY (BID)
     Route: 042
     Dates: start: 20181023, end: 20181026
  8. FENTANYL CITRATE. [Concomitant]
     Active Substance: FENTANYL CITRATE
     Indication: PRODUCT USED FOR UNKNOWN INDICATION
     Dosage: 0.5 MG, ONCE DAILY (QD)
     Route: 042
     Dates: start: 20181023, end: 20181023
  9. ALINAMIN F [Concomitant]
     Active Substance: FURSULTIAMINE HYDROCHLORIDE
     Indication: PRODUCT USED FOR UNKNOWN INDICATION
     Dosage: 100 MG PER DAY
     Route: 042
     Dates: start: 20181024, end: 20181026
  10. VEEN D [Concomitant]
     Active Substance: CALCIUM CHLORIDE\DEXTROSE\POTASSIUM CHLORIDE\SODIUM ACETATE\SODIUM CHLORIDE
     Indication: PRODUCT USED FOR UNKNOWN INDICATION
     Dosage: 500 ML, 2X/DAY (BID)
     Route: 042
     Dates: start: 20181024, end: 20181029
  11. E KEPPRA [Suspect]
     Active Substance: LEVETIRACETAM
     Indication: SEIZURE PROPHYLAXIS
     Dosage: 500 MG, 2X/DAY (BID)
     Route: 041
     Dates: start: 20181025, end: 20181028
  12. ASCORBIC ACID. [Concomitant]
     Active Substance: ASCORBIC ACID
     Indication: PRODUCT USED FOR UNKNOWN INDICATION
     Dosage: 1000 MG PER DAY
     Route: 042
     Dates: start: 20181024, end: 20181026
  13. PROPOFOL. [Concomitant]
     Active Substance: PROPOFOL
     Indication: PRODUCT USED FOR UNKNOWN INDICATION
     Dosage: 100 ML, ONCE DAILY (QD)
     Route: 042
     Dates: start: 20181023, end: 20181024

REACTIONS (3)
  - Myoglobin blood increased [Recovering/Resolving]
  - Altered state of consciousness [Unknown]
  - Blood creatine phosphokinase increased [Recovering/Resolving]

NARRATIVE: CASE EVENT DATE: 201810
